FAERS Safety Report 19242896 (Version 3)
Quarter: 2023Q1

REPORT INFORMATION
  Report Type: Report from Study
  Country: IT (occurrence: IT)
  Receive Date: 20210510
  Receipt Date: 20230102
  Transmission Date: 20230417
  Serious: Yes (Hospitalization)
  Sender: FDA-Public Use
  Company Number: IT-JNJFOC-20200839690

PATIENT
  Age: 57 Year
  Sex: Male
  Weight: 87 kg

DRUGS (12)
  1. DEXAMETHASONE [Suspect]
     Active Substance: DEXAMETHASONE
     Indication: Plasma cell myeloma
     Route: 065
  2. BENDAMUSTINE [Suspect]
     Active Substance: BENDAMUSTINE
     Indication: Plasma cell myeloma
     Route: 065
     Dates: start: 20200520
  3. BENDAMUSTINE [Suspect]
     Active Substance: BENDAMUSTINE
     Route: 065
     Dates: start: 20200706
  4. BENDAMUSTINE [Suspect]
     Active Substance: BENDAMUSTINE
     Route: 065
     Dates: start: 20200810
  5. BENDAMUSTINE [Suspect]
     Active Substance: BENDAMUSTINE
     Route: 065
     Dates: start: 20200907
  6. BENDAMUSTINE [Suspect]
     Active Substance: BENDAMUSTINE
     Route: 065
     Dates: start: 20201005
  7. BENDAMUSTINE [Suspect]
     Active Substance: BENDAMUSTINE
     Route: 065
     Dates: start: 20201102
  8. VELCADE [Suspect]
     Active Substance: BORTEZOMIB
     Indication: Plasma cell myeloma
     Route: 065
     Dates: start: 20200520, end: 20200520
  9. BUPRENORPHINE [Concomitant]
     Active Substance: BUPRENORPHINE
     Indication: Back pain
     Dates: start: 20200612, end: 20200617
  10. BUPRENORPHINE [Concomitant]
     Active Substance: BUPRENORPHINE
     Dates: start: 20200617
  11. MORPHINE [Concomitant]
     Active Substance: MORPHINE
     Indication: Back pain
     Dates: start: 20200612, end: 20200617
  12. MORPHINE [Concomitant]
     Active Substance: MORPHINE
     Dates: start: 20200617

REACTIONS (2)
  - Back pain [Not Recovered/Not Resolved]
  - Anaemia [Recovered/Resolved]

NARRATIVE: CASE EVENT DATE: 20200612
